FAERS Safety Report 9062579 (Version 1)
Quarter: 2013Q1

REPORT INFORMATION
  Report Type: Spontaneous
  Country: US (occurrence: None)
  Receive Date: 20130122
  Receipt Date: 20130122
  Transmission Date: 20140127
  Serious: Yes (Death)
  Sender: FDA-Public Use
  Company Number: FK201300066

PATIENT
  Age: 29 Year
  Sex: Male

DRUGS (2)
  1. MORPHINE [Suspect]
     Indication: PRODUCT USED FOR UNKNOWN INDICATION
     Route: 051
  2. ACETAMINOPHEN [Suspect]

REACTIONS (2)
  - Toxicity to various agents [None]
  - Drug abuse [None]
